FAERS Safety Report 24533882 (Version 1)
Quarter: 2024Q4

REPORT INFORMATION
  Report Type: Spontaneous
  Country: US (occurrence: US)
  Receive Date: 20241022
  Receipt Date: 20241022
  Transmission Date: 20250114
  Serious: Yes (Other)
  Sender: COOPERSURGICAL
  Company Number: US-COOPERSURGICAL, INC.-2024CPS000936

PATIENT
  Age: 32 Year
  Sex: Female
  Weight: 114.74 kg

DRUGS (6)
  1. PARAGARD T 380A [Suspect]
     Active Substance: COPPER
     Indication: Contraception
     Dosage: UNK
     Route: 015
     Dates: start: 20150728
  2. SULFASALAZINE [Concomitant]
     Active Substance: SULFASALAZINE
  3. QUETIAPINE [Concomitant]
     Active Substance: QUETIAPINE
  4. PROPRANOLOL [Concomitant]
     Active Substance: PROPRANOLOL HYDROCHLORIDE
  5. LAMOTRIGINE [Concomitant]
     Active Substance: LAMOTRIGINE
  6. SERTRALINE [Concomitant]
     Active Substance: SERTRALINE HYDROCHLORIDE

REACTIONS (14)
  - Reproductive complication associated with device [Unknown]
  - Deformity [Unknown]
  - Device breakage [Unknown]
  - Foreign body in reproductive tract [Unknown]
  - Complication of device removal [Unknown]
  - Embedded device [Unknown]
  - Uterine perforation [Unknown]
  - Procedural haemorrhage [Unknown]
  - Anxiety [Unknown]
  - Device issue [Unknown]
  - Device material issue [Unknown]
  - Dysmenorrhoea [Unknown]
  - Heavy menstrual bleeding [Unknown]
  - Pain [Unknown]

NARRATIVE: CASE EVENT DATE: 20240101
